FAERS Safety Report 5545361-5 (Version None)
Quarter: 2007Q4

REPORT INFORMATION
  Report Type: 
  Country: None (occurrence: None)
  Receive Date: 20071211
  Receipt Date: 20071130
  Transmission Date: 20080405
  Serious: Yes (Other)
  Sender: FDA-Public Use
  Company Number: JP-BRISTOL-MYERS SQUIBB COMPANY-14006233

PATIENT
  Age: 32 Month
  Sex: Male
  Weight: 10 kg

DRUGS (2)
  1. IFOSFAMIDE [Suspect]
     Indication: NEPHROBLASTOMA
     Dosage: 1 DOSAGE FORM=37.5G/M2
  2. CARBOPLATIN [Suspect]

REACTIONS (2)
  - FANCONI SYNDROME [None]
  - HYPERPARATHYROIDISM SECONDARY [None]
